FAERS Safety Report 9705638 (Version 1)
Quarter: 2013Q4

REPORT INFORMATION
  Report Type: Spontaneous
  Country: ES (occurrence: ES)
  Receive Date: 20131122
  Receipt Date: 20131122
  Transmission Date: 20140711
  Serious: Yes (Hospitalization)
  Sender: FDA-Public Use
  Company Number: ES-ASTRAZENECA-2013SE84188

PATIENT
  Age: 51 Year
  Sex: Male

DRUGS (2)
  1. PROPOFOL [Suspect]
     Indication: MECHANICAL VENTILATION
     Route: 042
  2. QUETIAPINE [Suspect]
     Route: 048

REACTIONS (4)
  - Toxicity to various agents [Unknown]
  - Depressed level of consciousness [Unknown]
  - Pneumonia aspiration [Unknown]
  - Chromaturia [Recovered/Resolved]
